FAERS Safety Report 17578378 (Version 2)
Quarter: 2020Q4

REPORT INFORMATION
  Report Type: Spontaneous
  Country: FR (occurrence: FR)
  Receive Date: 20200324
  Receipt Date: 20201007
  Transmission Date: 20210113
  Serious: Yes (Other)
  Sender: FDA-Public Use
  Company Number: FR-009507513-2003FRA007909

PATIENT
  Sex: Male

DRUGS (4)
  1. CYCLOSPORINE. [Concomitant]
     Active Substance: CYCLOSPORINE
     Dosage: HALF DOSE
  2. CYCLOSPORINE. [Concomitant]
     Active Substance: CYCLOSPORINE
     Dosage: UNK
  3. PREVYMIS [Suspect]
     Active Substance: LETERMOVIR
     Dosage: 480 MG
     Route: 048
  4. PREVYMIS [Suspect]
     Active Substance: LETERMOVIR
     Dosage: 240 MG DAILY
     Route: 048

REACTIONS (2)
  - Intentional product use issue [Unknown]
  - Cytomegalovirus infection reactivation [Unknown]
